FAERS Safety Report 5823687-5 (Version None)
Quarter: 2008Q3

REPORT INFORMATION
  Report Type: 
  Country: None (occurrence: None)
  Receive Date: 20080725
  Receipt Date: 20080716
  Transmission Date: 20090109
  Serious: Yes (Other)
  Sender: FDA-Public Use
  Company Number: FR-PFIZER INC-2008047608

PATIENT
  Age: 83 Year
  Sex: Male

DRUGS (4)
  1. XALATAN [Suspect]
     Indication: ANGLE CLOSURE GLAUCOMA
  2. COSOPT [Suspect]
     Indication: INTRAOCULAR PRESSURE INCREASED
     Dates: start: 20070101, end: 20070101
  3. TRUSOPT [Suspect]
     Indication: INTRAOCULAR PRESSURE INCREASED
  4. ALPHAGAN [Suspect]
     Indication: INTRAOCULAR PRESSURE INCREASED

REACTIONS (12)
  - ANGIOGRAM ABNORMAL [None]
  - ASTHMA [None]
  - EFFUSION [None]
  - EYE DISORDER [None]
  - EYE HAEMORRHAGE [None]
  - EYE OEDEMA [None]
  - INTRAOCULAR PRESSURE INCREASED [None]
  - SCAR [None]
  - SCLERAL DISORDER [None]
  - SCLERAL HYPERAEMIA [None]
  - VEIN DISORDER [None]
  - VISUAL ACUITY REDUCED [None]
